FAERS Safety Report 8340357 (Version 3)
Quarter: 2013Q2

REPORT INFORMATION
  Report Type: Spontaneous
  Country: MX (occurrence: MX)
  Receive Date: 20120117
  Receipt Date: 20130411
  Transmission Date: 20140414
  Serious: Yes (Death, Hospitalization)
  Sender: FDA-Public Use
  Company Number: PHHY2012MX003313

PATIENT
  Age: 78 Year
  Sex: Female

DRUGS (4)
  1. ACLASTA [Suspect]
     Indication: OSTEOPOROSIS
     Dosage: 5 MG, YEARLY
     Route: 042
     Dates: start: 20110511
  2. INSULIN [Concomitant]
     Indication: DIABETES MELLITUS
     Dosage: 20 IU, BID (20 IU IN THE MORNING/20 IU AT NIGHT)
  3. ANALGESICS [Concomitant]
     Indication: DIABETIC NEUROPATHY
  4. COMPLEJO B [Concomitant]
     Indication: DIABETIC NEUROPATHY

REACTIONS (3)
  - Cerebral haemorrhage [Fatal]
  - Diabetes mellitus [Fatal]
  - Peripheral nerve lesion [Fatal]
